FAERS Safety Report 20476435 (Version 7)
Quarter: 2022Q2

REPORT INFORMATION
  Report Type: Report from Study
  Country: CN (occurrence: None)
  Receive Date: 20220215
  Receipt Date: 20220427
  Transmission Date: 20220721
  Serious: Yes (Life-Threatening)
  Sender: FDA-Public Use
  Company Number: CN-ROCHE-3025596

PATIENT
  Age: 67 Year
  Sex: Male
  Weight: 56 kg

DRUGS (35)
  1. TIRAGOLUMAB [Suspect]
     Active Substance: TIRAGOLUMAB
     Indication: Oesophageal squamous cell carcinoma
     Dosage: DATE OF MOST RECENT DOSE OF STUDY DRUG PRIOR TO ADVERSE EVENT 19-JAN-2022
     Route: 042
     Dates: start: 20211117
  2. ATEZOLIZUMAB [Suspect]
     Active Substance: ATEZOLIZUMAB
     Indication: Oesophageal squamous cell carcinoma
     Dosage: DATE OF MOST RECENT DOSE OF STUDY DRUG PRIOR TO ADVERSE EVENT 19-JAN-2022
     Route: 041
     Dates: start: 20211117
  3. COMPOUND GLYCYRRHIZA ORAL SOLUTION [Concomitant]
     Dates: start: 20220119
  4. VITAMIN C [Concomitant]
     Active Substance: ASCORBIC ACID
     Dates: start: 20220211, end: 20220211
  5. VITAMIN C [Concomitant]
     Active Substance: ASCORBIC ACID
     Dates: start: 20220214, end: 20220214
  6. DEXTROSE\SODIUM CHLORIDE [Concomitant]
     Active Substance: DEXTROSE\SODIUM CHLORIDE
     Dates: start: 20220211, end: 20220211
  7. VITAMIN B6 [Concomitant]
     Active Substance: PYRIDOXINE HYDROCHLORIDE
     Dates: start: 20220211, end: 20220211
  8. VITAMIN B6 [Concomitant]
     Active Substance: PYRIDOXINE HYDROCHLORIDE
     Dates: start: 20220214, end: 20220214
  9. POTASSIUM CHLORIDE [Concomitant]
     Active Substance: POTASSIUM CHLORIDE
     Dates: start: 20220211, end: 20220211
  10. POTASSIUM CHLORIDE [Concomitant]
     Active Substance: POTASSIUM CHLORIDE
     Dates: start: 20220214, end: 20220221
  11. OMEPRAZOLE SODIUM [Concomitant]
     Active Substance: OMEPRAZOLE SODIUM
     Dates: start: 20220211, end: 20220213
  12. DYPHYLLINE [Concomitant]
     Active Substance: DYPHYLLINE
     Dates: start: 20220212, end: 20220215
  13. AMBROXOL [Concomitant]
     Active Substance: AMBROXOL
     Dates: start: 20220212, end: 20220213
  14. AMBROXOL [Concomitant]
     Active Substance: AMBROXOL
     Dates: start: 20220215, end: 20220221
  15. AMBROXOL [Concomitant]
     Active Substance: AMBROXOL
     Dates: start: 20220222
  16. INSULIN NOS [Concomitant]
     Active Substance: INSULIN NOS
     Dates: start: 20220212, end: 20220213
  17. INSULIN NOS [Concomitant]
     Active Substance: INSULIN NOS
     Dates: start: 20220215, end: 20220221
  18. NIFEDIPINE [Concomitant]
     Active Substance: NIFEDIPINE
     Dates: start: 20220212, end: 20220213
  19. PHENOBARBITAL [Concomitant]
     Active Substance: PHENOBARBITAL
     Dates: start: 20220213, end: 20220213
  20. ATROPINE [Concomitant]
     Active Substance: ATROPINE
     Dates: start: 20220213, end: 20220213
  21. PENICILLIN G SODIUM [Concomitant]
     Active Substance: PENICILLIN G SODIUM
     Dates: start: 20220213, end: 20220213
  22. PIPERACILLIN AND TAZOBACTAM [Concomitant]
     Active Substance: PIPERACILLIN SODIUM\TAZOBACTAM SODIUM
     Route: 042
     Dates: start: 20220213, end: 20220222
  23. TRAMADOL [Concomitant]
     Active Substance: TRAMADOL
     Route: 030
     Dates: start: 20220214, end: 20220214
  24. NITROGLYCERIN [Concomitant]
     Active Substance: NITROGLYCERIN
     Indication: Hypotension
     Dates: start: 20220214, end: 20220214
  25. SODIUM CHLORIDE [Concomitant]
     Active Substance: SODIUM CHLORIDE
     Dosage: 10% CONCENTRATION
     Dates: start: 20220215, end: 20220221
  26. SODIUM CHLORIDE [Concomitant]
     Active Substance: SODIUM CHLORIDE
     Dosage: 10% CONCENTRATION
     Dates: start: 20220212, end: 20220213
  27. OMEPRAZOLE SODIUM [Concomitant]
     Active Substance: OMEPRAZOLE SODIUM
     Dates: start: 20220215, end: 20220221
  28. FLUCONAZOLE [Concomitant]
     Active Substance: FLUCONAZOLE
     Route: 042
     Dates: start: 20220216, end: 20220222
  29. HEMOCOAGULASE ATROX [Concomitant]
     Dates: start: 20220216, end: 20220216
  30. AMINOMETHYLBENZOIC ACID [Concomitant]
     Active Substance: AMINOMETHYLBENZOIC ACID
     Dates: start: 20220216, end: 20220216
  31. ETHAMSYLATE [Concomitant]
     Active Substance: ETHAMSYLATE
     Dates: start: 20220216, end: 20220216
  32. VITAMIN K1 [Concomitant]
     Active Substance: PHYTONADIONE
     Dates: start: 20220216, end: 20220216
  33. COMPOUND METHOXYPHENAMINE [Concomitant]
     Dates: start: 20220218
  34. MOXIFLOXACIN HYDROCHLORIDE [Concomitant]
     Active Substance: MOXIFLOXACIN HYDROCHLORIDE
     Route: 048
     Dates: start: 20220222
  35. ESTAZOLAM [Concomitant]
     Active Substance: ESTAZOLAM
     Dates: start: 20220218

REACTIONS (1)
  - Acquired tracheo-oesophageal fistula [Not Recovered/Not Resolved]

NARRATIVE: CASE EVENT DATE: 20220211
